FAERS Safety Report 9216343 (Version 1)
Quarter: 2013Q2

REPORT INFORMATION
  Report Type: Spontaneous
  Country: FR (occurrence: FR)
  Receive Date: 20130408
  Receipt Date: 20130408
  Transmission Date: 20140414
  Serious: Yes (Hospitalization)
  Sender: FDA-Public Use
  Company Number: PHHY2013FR033535

PATIENT
  Age: 33 Year
  Sex: Female

DRUGS (2)
  1. LAMISIL [Suspect]
     Dosage: 250 MG, DAILY
     Route: 048
     Dates: start: 20070424
  2. ETHINYLESTRADIOL/DROSPIRENONE [Suspect]
     Indication: ORAL CONTRACEPTION
     Dosage: 0.02 MG/3 MG
     Route: 048

REACTIONS (3)
  - Pulmonary embolism [Recovered/Resolved]
  - Chest pain [Unknown]
  - Dyspnoea [Unknown]
